FAERS Safety Report 4748154-1 (Version None)
Quarter: 2005Q3

REPORT INFORMATION
  Report Type: 
  Country: None (occurrence: None)
  Receive Date: 20050818
  Receipt Date: 20050809
  Transmission Date: 20060218
  Serious: Yes (Hospitalization)
  Sender: FDA-Public Use
  Company Number: PHRM2005FR02259

PATIENT
  Age: 60 Year
  Sex: Female

DRUGS (1)
  1. VOLTAREN [Suspect]
     Indication: PAIN
     Dosage: 1 INJ./DAY
     Route: 030

REACTIONS (7)
  - ARTHRALGIA [None]
  - C-REACTIVE PROTEIN INCREASED [None]
  - JOINT EFFUSION [None]
  - PAIN IN EXTREMITY [None]
  - PYREXIA [None]
  - RHEUMATOID ARTHRITIS [None]
  - TRANSAMINASES INCREASED [None]
